FAERS Safety Report 8054797-2 (Version None)
Quarter: 2012Q1

REPORT INFORMATION
  Report Type: 
  Country: None (occurrence: None)
  Receive Date: 20120112
  Receipt Date: 20120103
  Transmission Date: 20120608
  Serious: Yes (Hospitalization)
  Sender: FDA-Public Use
  Company Number: 2012010034

PATIENT
  Age: 90 Year
  Sex: Female

DRUGS (2)
  1. METOLAZONE [Suspect]
     Indication: RENAL FAILURE CHRONIC
     Dosage: 5 MG (5 MG, 1 IN 1 D), ORAL
     Route: 048
     Dates: end: 20111116
  2. TORSEMIDE [Suspect]
     Indication: RENAL FAILURE CHRONIC
     Dosage: 150 MG (150 MG, 1 IN 1 D), ORAL
     Route: 048
     Dates: end: 20111116

REACTIONS (7)
  - HYPOKALAEMIA [None]
  - CONDITION AGGRAVATED [None]
  - DEHYDRATION [None]
  - GENERAL PHYSICAL HEALTH DETERIORATION [None]
  - ASTHENIA [None]
  - ALKALOSIS [None]
  - RENAL FAILURE CHRONIC [None]
